FAERS Safety Report 6297242-X (Version None)
Quarter: 2009Q3

REPORT INFORMATION
  Report Type: 
  Country: None (occurrence: None)
  Receive Date: 20090804
  Receipt Date: 20090804
  Transmission Date: 20100115
  Serious: Yes (Other)
  Sender: FDA-Public Use
  Company Number: None

PATIENT
  Sex: Female
  Weight: 89.8122 kg

DRUGS (1)
  1. LEVAQUIN [Suspect]
     Indication: SINUSITIS
     Dosage: 1 TABLET ONCE A DAY
     Dates: start: 20090608, end: 20090615

REACTIONS (3)
  - FEELING ABNORMAL [None]
  - IMPAIRED WORK ABILITY [None]
  - PALLOR [None]
